FAERS Safety Report 12548741 (Version 1)
Quarter: 2016Q3

REPORT INFORMATION
  Report Type: Spontaneous
  Country: None (occurrence: None)
  Receive Date: 20160711
  Receipt Date: 20160711
  Transmission Date: 20161109
  Serious: No
  Sender: FDA-Public Use
  Company Number: None

PATIENT

DRUGS (1)
  1. LEVOFLOXACIN 250MG TABS [Suspect]
     Active Substance: LEVOFLOXACIN
     Route: 048
     Dates: start: 20160621, end: 20160626

REACTIONS (2)
  - Headache [None]
  - Pain [None]
